FAERS Safety Report 13402165 (Version 3)
Quarter: 2017Q2

REPORT INFORMATION
  Report Type: Spontaneous
  Country: JP (occurrence: JP)
  Receive Date: 20170404
  Receipt Date: 20170411
  Transmission Date: 20170830
  Serious: Yes (Life-Threatening)
  Sender: FDA-Public Use
  Company Number: JP-PFIZER INC-2017140905

PATIENT
  Age: 58 Year
  Sex: Female

DRUGS (27)
  1. LYRICA [Suspect]
     Active Substance: PREGABALIN
     Dosage: 75 MG, 2X/DAY EACH IN THE MORNING AND EVENING
     Route: 048
     Dates: start: 20140115, end: 20140123
  2. CYMBALTA [Suspect]
     Active Substance: DULOXETINE HYDROCHLORIDE
     Dosage: 40 MG, DAILY
     Route: 048
     Dates: start: 20140428
  3. ROZEREM [Suspect]
     Active Substance: RAMELTEON
     Dosage: 8 MG, DAILY BEFORE BEDTIME
     Route: 048
     Dates: start: 20130611, end: 20140427
  4. LYRICA [Suspect]
     Active Substance: PREGABALIN
     Indication: FIBROMYALGIA
     Dosage: 75 MG, 1X/DAY IN THE MORNING
     Route: 048
     Dates: start: 20140107, end: 20140114
  5. LYRICA [Suspect]
     Active Substance: PREGABALIN
     Dosage: 75 MG IN THE MORNING AND 150MG IN THE EVENING
     Route: 048
     Dates: start: 20140124, end: 20140131
  6. LYRICA [Suspect]
     Active Substance: PREGABALIN
     Dosage: 150 MG, 2X/DAY
     Route: 048
     Dates: start: 20140201, end: 20140307
  7. REBAMIPIDE [Suspect]
     Active Substance: REBAMIPIDE
     Dosage: 3 DF, DAILY
     Route: 048
     Dates: start: 20140308
  8. CYMBALTA [Suspect]
     Active Substance: DULOXETINE HYDROCHLORIDE
     Indication: DEPRESSION
     Dosage: 60 MG, DAILY
     Route: 048
     Dates: start: 20130611, end: 20140427
  9. LOXONIN [Suspect]
     Active Substance: LOXOPROFEN SODIUM
     Dosage: 1 DF, DAILY
     Route: 048
     Dates: start: 20130717, end: 20140307
  10. LOXONIN [Suspect]
     Active Substance: LOXOPROFEN SODIUM
     Dosage: 3 DF, DAILY
     Route: 048
     Dates: start: 20140308
  11. LYRICA [Suspect]
     Active Substance: PREGABALIN
     Dosage: 75 MG, 2X/DAY EACH IN THE MORNING AND EVENING
     Route: 048
     Dates: start: 20140408, end: 20150218
  12. WASSER V [Suspect]
     Active Substance: ASCORBIC ACID\VITAMIN B COMPLEX
     Dosage: 2 G, 2X/DAY
     Route: 048
     Dates: start: 20150718, end: 20160420
  13. LYRICA [Suspect]
     Active Substance: PREGABALIN
     Dosage: 50MG IN THE MORNING, 150MG IN THE EVENING
     Route: 048
     Dates: start: 20160308, end: 20160404
  14. LYRICA [Suspect]
     Active Substance: PREGABALIN
     Dosage: 125MG IN THE MORNING AND 150MG IN THE EVENING
     Route: 048
     Dates: start: 20160405, end: 20170118
  15. REBAMIPIDE [Suspect]
     Active Substance: REBAMIPIDE
     Dosage: 1 DF, AS NEEDED
     Route: 048
     Dates: start: 20130717, end: 20140307
  16. CYMBALTA [Suspect]
     Active Substance: DULOXETINE HYDROCHLORIDE
     Dosage: 20 MG 2/DAY
     Route: 048
     Dates: start: 20170114
  17. NEUROTROPIN [Suspect]
     Active Substance: NEUROTROPIN
     Dosage: 4 DF, 2X/DAY
     Route: 048
     Dates: start: 20140308
  18. LANSOPRAZOLE OD [Suspect]
     Active Substance: LANSOPRAZOLE
     Dosage: 15 MG, 1X/DAY
     Route: 048
     Dates: start: 20131105
  19. MYSLEE [Suspect]
     Active Substance: ZOLPIDEM TARTRATE
     Dosage: 10 MG, BEFORE BEDTIME
     Route: 048
     Dates: start: 20170114
  20. LYRICA [Suspect]
     Active Substance: PREGABALIN
     Dosage: 125MG IN THE MORNING AND 150MG IN THE EVENING
     Route: 048
     Dates: start: 20150219, end: 20160307
  21. MOHRUS [Suspect]
     Active Substance: KETOPROFEN
     Dosage: 40 MG, UNK
     Dates: start: 20160308
  22. MECOBALAMIN [Suspect]
     Active Substance: METHYLCOBALAMIN
     Dosage: 3 DF, 1X/DAY
     Route: 048
     Dates: start: 20151111, end: 20160209
  23. ROZEREM [Suspect]
     Active Substance: RAMELTEON
     Dosage: 8 MG, DAILY
     Route: 048
     Dates: start: 20140428
  24. LYRICA [Suspect]
     Active Substance: PREGABALIN
     Dosage: 75MG IN THE MORNING AND 150 IN THE EVENING
     Route: 048
     Dates: start: 20140308, end: 20140407
  25. MYSLEE [Suspect]
     Active Substance: ZOLPIDEM TARTRATE
     Dosage: 10 MG, DAILY
     Route: 048
     Dates: start: 20140428
  26. EURODIN (ESTAZOLAM) [Suspect]
     Active Substance: ESTAZOLAM
     Dosage: 2 MG, DAILY BEFORE BEDTIME
     Route: 048
     Dates: start: 20140428
  27. MOHRUS [Suspect]
     Active Substance: KETOPROFEN
     Dosage: 40 MG, UNK
     Dates: start: 20150718

REACTIONS (17)
  - Vomiting [Unknown]
  - Weight decreased [Recovered/Resolved]
  - Hepatic function abnormal [Recovered/Resolved]
  - Abdominal distension [Recovered/Resolved]
  - Productive cough [Unknown]
  - Rhinorrhoea [Unknown]
  - Hepatosplenomegaly [Unknown]
  - Viral upper respiratory tract infection [Unknown]
  - Diarrhoea [Unknown]
  - Ascites [Recovered/Resolved]
  - Cough [Unknown]
  - Hepatic steatosis [Unknown]
  - Aspartate aminotransferase increased [Recovered/Resolved]
  - Asthenia [Unknown]
  - Jaundice [Recovered/Resolved]
  - Alanine aminotransferase increased [Recovered/Resolved]
  - Dizziness [Unknown]

NARRATIVE: CASE EVENT DATE: 20160224
